FAERS Safety Report 19024312 (Version 1)
Quarter: 2021Q1

REPORT INFORMATION
  Report Type: Spontaneous
  Country: FR (occurrence: FR)
  Receive Date: 20210317
  Receipt Date: 20210317
  Transmission Date: 20210420
  Serious: Yes (Life-Threatening)
  Sender: FDA-Public Use
  Company Number: FR-BAXTER-2021BAX005114

PATIENT
  Age: 14 Year
  Sex: Male
  Weight: 53 kg

DRUGS (8)
  1. SEVOFLURANE BAXTER 1 ML/ML, LIQUIDE POUR INHALATION PAR VAPEUR [Suspect]
     Active Substance: SEVOFLURANE
     Indication: GENERAL ANAESTHESIA
     Route: 055
     Dates: start: 20210220, end: 20210220
  2. CONTRAMAL [Concomitant]
     Active Substance: TRAMADOL HYDROCHLORIDE
     Indication: GENERAL ANAESTHESIA
     Dosage: 100 MG/2 ML, SOLUTION FOR INJECTION
     Route: 041
     Dates: start: 20210220, end: 20210220
  3. SUFENTANIL MYLAN [Concomitant]
     Active Substance: SUFENTANIL
     Indication: GENERAL ANAESTHESIA
     Dosage: 50 MICROGRAMS/ML, SOLUTION FOR INJECTION
     Route: 041
     Dates: start: 20210220, end: 20210220
  4. PROPOFOL PANPHARMA 10 MG/ML EMULSION INJECTABLE [Suspect]
     Active Substance: PROPOFOL
     Indication: GENERAL ANAESTHESIA
     Dosage: LIPURO 2% (20 MG/ML), EMULSION FOR INJECTION OR INFUSION
     Route: 041
     Dates: start: 20210220, end: 20210220
  5. DEXAMETHASONE MYLAN [Concomitant]
     Active Substance: DEXAMETHASONE
     Indication: GENERAL ANAESTHESIA
     Dosage: 4 MG/1 ML, SOLUTION FOR INJECTION IN AMPOULE
     Route: 041
     Dates: start: 20210220, end: 20210220
  6. NAROPEINE [Suspect]
     Active Substance: ROPIVACAINE HYDROCHLORIDE
     Indication: GENERAL ANAESTHESIA
     Dosage: 10 MG/ML, SOLUTION FOR INJECTION IN AMPOULE
     Route: 053
     Dates: start: 20210220, end: 20210220
  7. VENTOLINE [Concomitant]
     Active Substance: ALBUTEROL
     Indication: PRODUCT USED FOR UNKNOWN INDICATION
     Route: 055
     Dates: start: 20210220, end: 20210220
  8. KETAMINE RENAUDIN [Suspect]
     Active Substance: KETAMINE
     Indication: GENERAL ANAESTHESIA
     Dosage: 50 MG/ML, SOLUTION FOR INJECTION
     Route: 041
     Dates: start: 20210220, end: 20210220

REACTIONS (2)
  - Coma [Recovered/Resolved]
  - Delayed recovery from anaesthesia [Recovered/Resolved]

NARRATIVE: CASE EVENT DATE: 20210220
